FAERS Safety Report 5098875-9 (Version None)
Quarter: 2006Q3

REPORT INFORMATION
  Report Type: 
  Country: None (occurrence: None)
  Receive Date: 20060905
  Receipt Date: 20060819
  Transmission Date: 20061208
  Serious: Yes (Hospitalization)
  Sender: FDA-Public Use
  Company Number: 2006SP000036

PATIENT
  Age: 47 Year
  Sex: Female

DRUGS (21)
  1. PEG-INTRON [Suspect]
     Indication: HEPATITIS C
     Dosage: SC
     Route: 058
     Dates: start: 20060531
  2. RIBAVIRIN [Suspect]
     Indication: HEPATITIS C
     Dosage: PO
     Route: 048
     Dates: start: 20060531
  3. ADVAIR (CON) [Concomitant]
  4. ALBUTEROL SULFATE /00139502/ (CON.) [Concomitant]
  5. AMITRIPTYLINE HCL [Concomitant]
  6. HYDROCHOLORIDE (CON.) [Concomitant]
  7. ALBUTEROL SULFATE [Concomitant]
  8. CELEXA [Concomitant]
  9. DITROPAN [Concomitant]
  10. FLEXERIL [Concomitant]
  11. GLUCOPHAGE [Concomitant]
  12. HYDROCODONE BITARTRATE [Concomitant]
  13. IMITREX [Concomitant]
  14. LIPITOR [Concomitant]
  15. LISINOPRIL [Concomitant]
  16. NEURONTIN [Concomitant]
  17. OXYCODONE HCL [Concomitant]
  18. PREVACID [Concomitant]
  19. ASPIRIN [Concomitant]
  20. TRAZODONE HCL [Concomitant]
  21. WELLBUTRIN [Concomitant]

REACTIONS (6)
  - ASTHENIA [None]
  - BLOOD GLUCOSE DECREASED [None]
  - COMA [None]
  - HYPOTENSION [None]
  - PNEUMONIA [None]
  - RENAL FAILURE [None]
